FAERS Safety Report 4747367-2 (Version None)
Quarter: 2005Q3

REPORT INFORMATION
  Report Type: 
  Country: None (occurrence: None)
  Receive Date: 20050817
  Receipt Date: 20050711
  Transmission Date: 20060218
  Serious: Yes (Hospitalization, Other)
  Sender: FDA-Public Use
  Company Number: US-MERCK-0507USA01502

PATIENT
  Age: 37 Year
  Sex: Female
  Weight: 91 kg

DRUGS (13)
  1. VIOXX [Suspect]
     Indication: BACK PAIN
     Route: 048
     Dates: start: 19990824, end: 20010821
  2. VIOXX [Suspect]
     Route: 048
  3. HYDROCODONE HYDROCHLORIDE [Concomitant]
     Route: 065
  4. VICOPROFEN [Concomitant]
     Route: 065
  5. SOMA [Concomitant]
     Route: 065
  6. NEURONTIN [Concomitant]
     Route: 065
  7. AMITRIPTYLINE HYDROCHLORIDE [Concomitant]
     Route: 065
  8. PREDNISONE [Concomitant]
     Route: 065
  9. LORTAB [Concomitant]
     Route: 065
  10. BIAXIN [Concomitant]
     Route: 065
  11. PANMIST DM [Concomitant]
     Route: 065
  12. TUSSIN EXPECTORANT [Concomitant]
     Route: 065
  13. ULTRAM [Concomitant]
     Route: 065

REACTIONS (6)
  - ADVERSE DRUG REACTION [None]
  - CEREBROVASCULAR ACCIDENT [None]
  - CHEST PAIN [None]
  - DEPRESSION [None]
  - MYOCARDIAL INFARCTION [None]
  - PNEUMONIA [None]
